FAERS Safety Report 12361704 (Version 3)
Quarter: 2019Q2

REPORT INFORMATION
  Report Type: Report from Study
  Country: US (occurrence: US)
  Receive Date: 20160512
  Receipt Date: 20190606
  Transmission Date: 20190711
  Serious: No
  Sender: FDA-Public Use
  Company Number: US-SA-2016SA076031

PATIENT
  Age: 79 Year
  Sex: Male

DRUGS (2)
  1. ALIROCUMAB [Suspect]
     Active Substance: ALIROCUMAB
     Dosage: 1 DF; 150MG/ML
     Route: 058
     Dates: start: 20180420
  2. ALIROCUMAB [Suspect]
     Active Substance: ALIROCUMAB
     Dosage: 150 MG, QOW
     Route: 058
     Dates: start: 20160315

REACTIONS (9)
  - Dyspnoea [Unknown]
  - Speech disorder [Unknown]
  - Dysphonia [Unknown]
  - Rhinorrhoea [Unknown]
  - Lethargy [Not Recovered/Not Resolved]
  - Bronchitis [Unknown]
  - Oropharyngeal pain [Unknown]
  - Influenza like illness [Unknown]
  - Product dose omission [Unknown]

NARRATIVE: CASE EVENT DATE: 2016
